FAERS Safety Report 26208180 (Version 1)
Quarter: 2025Q4

REPORT INFORMATION
  Report Type: Spontaneous
  Country: US (occurrence: US)
  Receive Date: 20251229
  Receipt Date: 20251229
  Transmission Date: 20260119
  Serious: Yes (Other)
  Sender: MYLAN
  Company Number: US-MYLANLABS-2025M1110104

PATIENT
  Age: 60 Year
  Sex: Female

DRUGS (8)
  1. PREDNISONE [Suspect]
     Active Substance: PREDNISONE
     Indication: Asthma
     Dosage: UNK
     Route: 065
  2. PREDNISONE [Suspect]
     Active Substance: PREDNISONE
     Dosage: UNK
  3. PREDNISONE [Suspect]
     Active Substance: PREDNISONE
     Dosage: UNK
  4. PREDNISONE [Suspect]
     Active Substance: PREDNISONE
     Dosage: UNK
     Route: 065
  5. PREDNISONE [Suspect]
     Active Substance: PREDNISONE
     Dosage: UNK, THERAPY RESTARTED
     Route: 065
  6. PREDNISONE [Suspect]
     Active Substance: PREDNISONE
     Dosage: UNK, THERAPY RESTARTED
  7. PREDNISONE [Suspect]
     Active Substance: PREDNISONE
     Dosage: UNK, THERAPY RESTARTED
  8. PREDNISONE [Suspect]
     Active Substance: PREDNISONE
     Dosage: UNK, THERAPY RESTARTED
     Route: 065

REACTIONS (2)
  - Rebound effect [Recovering/Resolving]
  - Asthma [Recovering/Resolving]
